FAERS Safety Report 18083278 (Version 2)
Quarter: 2020Q4

REPORT INFORMATION
  Report Type: Spontaneous
  Country: US (occurrence: US)
  Receive Date: 20200729
  Receipt Date: 20201006
  Transmission Date: 20210113
  Serious: No
  Sender: FDA-Public Use
  Company Number: US-SA-2020SA193119

PATIENT

DRUGS (1)
  1. DUPIXENT [Suspect]
     Active Substance: DUPILUMAB
     Indication: DERMATITIS ATOPIC
     Dosage: 300 MG, QOW
     Route: 058
     Dates: start: 202006

REACTIONS (5)
  - Erythema [Unknown]
  - Erythema of eyelid [Unknown]
  - Dermatitis atopic [Unknown]
  - Product storage error [Unknown]
  - Off label use [Unknown]

NARRATIVE: CASE EVENT DATE: 2020
